FAERS Safety Report 5631237-1 (Version None)
Quarter: 2008Q1

REPORT INFORMATION
  Report Type: 
  Country: None (occurrence: None)
  Receive Date: 20080131
  Receipt Date: 20071025
  Transmission Date: 20080703
  Serious: No
  Sender: FDA-Public Use
  Company Number: 163-21880-07101524

PATIENT
  Age: 85 Year
  Sex: Female

DRUGS (1)
  1. REVLIMID [Suspect]
     Indication: LYMPHATIC SYSTEM NEOPLASM
     Dosage: 10 MG, DAILY FOR 28 DAYS, ORAL
     Route: 048
     Dates: start: 20070906, end: 20071025

REACTIONS (6)
  - AGEUSIA [None]
  - INSOMNIA [None]
  - LIP BLISTER [None]
  - NIGHT SWEATS [None]
  - ORAL PAIN [None]
  - VISION BLURRED [None]
